FAERS Safety Report 5293979-X (Version None)
Quarter: 2007Q2

REPORT INFORMATION
  Report Type: 
  Country: None (occurrence: None)
  Receive Date: 20070405
  Receipt Date: 20070323
  Transmission Date: 20071010
  Serious: Yes (Other)
  Sender: FDA-Public Use
  Company Number: MC200700266

PATIENT
  Sex: Male

DRUGS (3)
  1. ANGIOMAX [Suspect]
     Indication: CORONARY ANGIOPLASTY
     Dosage: SEE IMAGE
     Dates: start: 20070323, end: 20070323
  2. ANGIOMAX [Suspect]
     Indication: CORONARY ANGIOPLASTY
     Dosage: SEE IMAGE
     Dates: start: 20070323, end: 20070323
  3. ASPIRIN [Concomitant]

REACTIONS (3)
  - CORONARY ARTERY PERFORATION [None]
  - IATROGENIC INJURY [None]
  - PROCEDURAL COMPLICATION [None]
